FAERS Safety Report 4537948-3 (Version None)
Quarter: 2004Q4

REPORT INFORMATION
  Report Type: 
  Country: None (occurrence: None)
  Receive Date: 20041224
  Receipt Date: 20041221
  Transmission Date: 20050328
  Serious: Yes (Other)
  Sender: FDA-Public Use
  Company Number: PHEH2004US13525

PATIENT
  Age: 58 Year
  Sex: Female

DRUGS (3)
  1. LOTREL [Suspect]
     Indication: HYPERTENSION
     Dosage: 5 MG AMLOD/20 MG BEN QD
     Dates: start: 20040401, end: 20041218
  2. PREMARIN                                /NEZ/ [Concomitant]
  3. NEXIUM [Concomitant]

REACTIONS (4)
  - ANKLE FRACTURE [None]
  - FALL [None]
  - OEDEMA PERIPHERAL [None]
  - ORTHOPEDIC PROCEDURE [None]
